FAERS Safety Report 5501152-2 (Version None)
Quarter: 2007Q4

REPORT INFORMATION
  Report Type: 
  Country: None (occurrence: None)
  Receive Date: 20071029
  Receipt Date: 20071009
  Transmission Date: 20080405
  Serious: No
  Sender: FDA-Public Use
  Company Number: US-BOEHRINGER INGELHEIM PHARMACEUTICALS, INC.-2007-BP-22776PF

PATIENT
  Age: 61 Year
  Sex: Female

DRUGS (7)
  1. SPIRIVA [Suspect]
     Indication: CHRONIC OBSTRUCTIVE PULMONARY DISEASE
     Route: 055
     Dates: start: 20010101
  2. SPIRIVA [Suspect]
     Indication: EMPHYSEMA
  3. DIOVAN [Concomitant]
  4. LIPITOR [Concomitant]
  5. PULMICORT [Concomitant]
  6. SEREVENT [Concomitant]
  7. ALBUTEROL [Concomitant]

REACTIONS (2)
  - CAROTID ARTERY OCCLUSION [None]
  - THYROID MASS [None]
